FAERS Safety Report 12061853 (Version 1)
Quarter: 2016Q1

REPORT INFORMATION
  Report Type: Spontaneous
  Country: US (occurrence: US)
  Receive Date: 20160210
  Receipt Date: 20160210
  Transmission Date: 20160526
  Serious: Yes (Other)
  Sender: FDA-Public Use
  Company Number: US-BAYER-2016-026459

PATIENT
  Sex: Male

DRUGS (1)
  1. BAYER GENUINE ASPIRIN [Suspect]
     Active Substance: ASPIRIN

REACTIONS (1)
  - Heart valve replacement [Recovered/Resolved]

NARRATIVE: CASE EVENT DATE: 2012
